FAERS Safety Report 16320134 (Version 1)
Quarter: 2019Q2

REPORT INFORMATION
  Report Type: Spontaneous
  Country: US (occurrence: US)
  Receive Date: 20190516
  Receipt Date: 20190516
  Transmission Date: 20190711
  Serious: No
  Sender: FDA-Public Use
  Company Number: US-HIKMA PHARMACEUTICALS USA INC.-US-H14001-19-01161

PATIENT
  Age: 86 Year
  Sex: Male

DRUGS (2)
  1. PREDNISONE. [Suspect]
     Active Substance: PREDNISONE
     Route: 065
     Dates: start: 20190124
  2. PREDNISONE. [Suspect]
     Active Substance: PREDNISONE
     Indication: PLATELET COUNT DECREASED
     Route: 065
     Dates: start: 20181101

REACTIONS (3)
  - Pain [Unknown]
  - Somnolence [Unknown]
  - Therapeutic product effect variable [Unknown]
